FAERS Safety Report 12978915 (Version 1)
Quarter: 2016Q4

REPORT INFORMATION
  Report Type: Spontaneous
  Country: US (occurrence: US)
  Receive Date: 20161128
  Receipt Date: 20161128
  Transmission Date: 20170207
  Serious: No
  Sender: FDA-Public Use
  Company Number: None

PATIENT

DRUGS (2)
  1. DIVALPROEX [Suspect]
     Active Substance: DIVALPROEX SODIUM
  2. DIVALPROEX [Suspect]
     Active Substance: DIVALPROEX SODIUM

REACTIONS (2)
  - Incorrect drug dosage form administered [None]
  - Transcription medication error [None]
